FAERS Safety Report 21254801 (Version 3)
Quarter: 2022Q3

REPORT INFORMATION
  Report Type: Spontaneous
  Country: CZ (occurrence: CZ)
  Receive Date: 20220825
  Receipt Date: 20220919
  Transmission Date: 20221027
  Serious: Yes (Hospitalization, Disabling, Other)
  Sender: FDA-Public Use
  Company Number: CZ-EMA-DD-20220805-216281-132615

PATIENT
  Sex: Female

DRUGS (6)
  1. ZOLPIDEM TARTRATE [Suspect]
     Active Substance: ZOLPIDEM TARTRATE
     Indication: Drug abuse
     Dosage: OVERUSED
  2. IBUPROFEN [Suspect]
     Active Substance: IBUPROFEN
     Indication: Pain
     Dosage: UNK
  3. TRAMADOL HYDROCHLORIDE [Suspect]
     Active Substance: TRAMADOL HYDROCHLORIDE
     Indication: Drug abuse
     Dosage: OVERUSED
  4. TRAMADOL HYDROCHLORIDE [Suspect]
     Active Substance: TRAMADOL HYDROCHLORIDE
     Indication: Product used for unknown indication
  5. OXAZEPAM [Suspect]
     Active Substance: OXAZEPAM
     Indication: Drug abuse
     Dosage: OVERUSED
  6. ZOLPIDEM TARTRATE [Suspect]
     Active Substance: ZOLPIDEM TARTRATE
     Indication: Drug abuse
     Dosage: OVERUSED

REACTIONS (10)
  - Anxiety [Recovering/Resolving]
  - Cognitive disorder [Recovering/Resolving]
  - Concomitant disease aggravated [Recovering/Resolving]
  - Fall [Recovered/Resolved]
  - Deafness [Recovering/Resolving]
  - Hypoacusis [Recovering/Resolving]
  - Drug abuse [Recovering/Resolving]
  - Intentional product misuse [Unknown]
  - Restlessness [Recovering/Resolving]
  - Sleep disorder [Unknown]
